FAERS Safety Report 9093897 (Version 1)
Quarter: 2013Q1

REPORT INFORMATION
  Report Type: Spontaneous
  Country: AU (occurrence: AU)
  Receive Date: 20130218
  Receipt Date: 20130218
  Transmission Date: 20140127
  Serious: Yes (Hospitalization, Disabling, Other)
  Sender: FDA-Public Use
  Company Number: AU-ELI_LILLY_AND_COMPANY-AU201302002933

PATIENT
  Age: 39 Year
  Sex: Female
  Weight: 52 kg

DRUGS (7)
  1. ZYPREXA [Suspect]
     Indication: SCHIZOAFFECTIVE DISORDER
     Dosage: 10 MG, QD
     Route: 048
     Dates: start: 20110110
  2. ZYPREXA [Suspect]
     Dosage: 15 MG, QD
  3. EFFEXOR XR [Concomitant]
     Dosage: 150 MG, QD
     Route: 048
     Dates: start: 20120107
  4. EFFEXOR XR [Concomitant]
     Dosage: 225 MG, QD
  5. FISHAPHOS [Concomitant]
     Dosage: UNK
     Dates: start: 20120928
  6. FISH OIL [Concomitant]
     Dosage: 6000 MG, BID
  7. B1 VITAMIN [Concomitant]
     Dosage: 1 DF, QD

REACTIONS (17)
  - Akathisia [Not Recovered/Not Resolved]
  - Convulsion [Not Recovered/Not Resolved]
  - Suicidal ideation [Not Recovered/Not Resolved]
  - Dizziness [Not Recovered/Not Resolved]
  - Palpitations [Not Recovered/Not Resolved]
  - Tremor [Not Recovered/Not Resolved]
  - Aggression [Not Recovered/Not Resolved]
  - Depression [Not Recovered/Not Resolved]
  - Speech disorder [Not Recovered/Not Resolved]
  - Anxiety [Not Recovered/Not Resolved]
  - Irritability [Not Recovered/Not Resolved]
  - Insomnia [Not Recovered/Not Resolved]
  - Tachyphrenia [Not Recovered/Not Resolved]
  - Nausea [Not Recovered/Not Resolved]
  - Headache [Not Recovered/Not Resolved]
  - Constipation [Not Recovered/Not Resolved]
  - Drug dose omission [Not Recovered/Not Resolved]
